FAERS Safety Report 4445111-X (Version None)
Quarter: 2004Q3

REPORT INFORMATION
  Report Type: 
  Country: None (occurrence: None)
  Receive Date: 20040907
  Receipt Date: 20040820
  Transmission Date: 20050211
  Serious: Yes (Hospitalization)
  Sender: FDA-Public Use
  Company Number: 2004GB02033

PATIENT
  Age: 64 Year
  Sex: Female
  Weight: 89.5 kg

DRUGS (4)
  1. ARIMIDEX [Suspect]
     Indication: BREAST CANCER
     Dates: start: 19980722, end: 20030721
  2. ATENOLOL [Concomitant]
  3. LOCOID [Concomitant]
  4. QUININE SULPHATE [Concomitant]

REACTIONS (1)
  - OSTEOARTHRITIS [None]
